FAERS Safety Report 7535178-4 (Version None)
Quarter: 2011Q2

REPORT INFORMATION
  Report Type: 
  Country: None (occurrence: None)
  Receive Date: 20110609
  Receipt Date: 20090310
  Transmission Date: 20111010
  Serious: Yes (Hospitalization)
  Sender: FDA-Public Use
  Company Number: PHHY2009DE00835

PATIENT
  Sex: Male
  Weight: 69 kg

DRUGS (18)
  1. EXJADE [Suspect]
     Indication: HAEMOSIDEROSIS
     Dosage: 3.5 MG/KG
     Route: 048
     Dates: start: 20070629, end: 20071218
  2. PANTOPRAZOLE [Concomitant]
     Indication: NAUSEA
     Dosage: 40 MG
     Route: 048
     Dates: start: 20080104
  3. SANDIMMUNE [Concomitant]
     Dosage: 140 MG, DAILY
     Dates: start: 20071021, end: 20071029
  4. VFEND [Concomitant]
     Dosage: 200 MG, BID
     Route: 048
     Dates: start: 20080103
  5. BISOPROLOL FUMARATE [Concomitant]
     Indication: HYPERTENSION
     Dosage: 5 MG
     Route: 048
     Dates: start: 20080210
  6. VALCYTE [Concomitant]
     Indication: PROPHYLAXIS
     Dosage: 900 MG, QD
     Dates: start: 20080222
  7. EXJADE [Suspect]
     Dosage: 14.5 MG/KG
     Route: 048
     Dates: start: 20071219, end: 20080101
  8. LEVOFLOXACIN [Concomitant]
     Indication: PROPHYLAXIS
     Dosage: 500 MG, QD
     Route: 048
     Dates: start: 20080105
  9. ATOVAQUONE [Concomitant]
     Dosage: 10 ML
     Route: 048
     Dates: start: 20080222
  10. ENOXAPARIN SODIUM [Concomitant]
     Indication: PROPHYLAXIS
     Dosage: 40 MG, UNK
     Route: 058
     Dates: start: 20080213
  11. PANTOPRAZOLE [Concomitant]
     Indication: VOMITING
  12. METHYLPREDNISOLONE [Concomitant]
     Indication: IMMUNOSUPPRESSION
     Dosage: 32 MG, BID
     Route: 048
     Dates: start: 20080121
  13. STEROFUNDIN [Concomitant]
     Route: 051
  14. ACYCLOVIR [Concomitant]
     Dosage: 1200 MG, DAILY
     Dates: start: 20071019
  15. DIPYRONE TAB [Concomitant]
     Dates: start: 20071019
  16. OLICLINOMEL [Concomitant]
     Route: 051
  17. COTRIM [Concomitant]
     Dates: start: 20071022, end: 20071109
  18. NORVASC [Concomitant]
     Indication: HYPERTENSION
     Dosage: 5 MG, BID
     Route: 048
     Dates: start: 20080128

REACTIONS (2)
  - RASH [None]
  - ACUTE MYELOID LEUKAEMIA RECURRENT [None]
